FAERS Safety Report 6394568-6 (Version None)
Quarter: 2009Q4

REPORT INFORMATION
  Report Type: 
  Country: None (occurrence: None)
  Receive Date: 20091009
  Receipt Date: 20091001
  Transmission Date: 20100525
  Serious: Yes (Hospitalization)
  Sender: FDA-Public Use
  Company Number: IN-WYE-H10767109

PATIENT
  Sex: Male
  Weight: 45 kg

DRUGS (7)
  1. TEMSIROLIMUS [Suspect]
     Indication: RENAL CELL CARCINOMA
     Route: 042
     Dates: start: 20090209, end: 20090826
  2. DUPHALAC [Concomitant]
     Indication: CONSTIPATION
     Dosage: UNKNOWN SYRUP
     Route: 048
     Dates: start: 20090302
  3. ATORVASTATIN [Concomitant]
     Indication: HYPERLIPIDAEMIA
     Dosage: UNKNOWN TABLET
     Route: 048
     Dates: start: 20090325
  4. MORPHINE [Concomitant]
     Indication: PAIN
     Dosage: UNKNOWN TABLET
     Route: 048
     Dates: start: 20090302
  5. BEVACIZUMAB [Concomitant]
     Indication: RENAL CELL CARCINOMA
     Route: 042
     Dates: start: 20090209, end: 20090826
  6. BEVACIZUMAB [Concomitant]
     Dosage: UNKNOWN
     Dates: start: 20090101
  7. CODEINE LINCTUS [Concomitant]
     Indication: COUGH
     Dosage: UNKNOWN
     Route: 048
     Dates: start: 20090806

REACTIONS (2)
  - ANAEMIA [None]
  - HYPONATRAEMIA [None]
